FAERS Safety Report 11692175 (Version 1)
Quarter: 2015Q4

REPORT INFORMATION
  Report Type: Report from Study
  Country: ID (occurrence: ID)
  Receive Date: 20151103
  Receipt Date: 20151103
  Transmission Date: 20160304
  Serious: Yes (Other)
  Sender: FDA-Public Use
  Company Number: ID-ROCHE-1639941

PATIENT
  Sex: Male

DRUGS (2)
  1. PEGASYS [Suspect]
     Active Substance: PEGINTERFERON ALFA-2A
     Indication: HEPATITIS C
     Route: 065
  2. COPEGUS [Suspect]
     Active Substance: RIBAVIRIN
     Indication: HEPATITIS C
     Dosage: RIBAVIRIN DECREASED TO 2-0-1.
     Route: 065

REACTIONS (6)
  - Leukopenia [Unknown]
  - Thrombocytopenia [Unknown]
  - Skin hyperpigmentation [Unknown]
  - Anaemia [Unknown]
  - General physical health deterioration [Unknown]
  - Pruritus [Unknown]
